FAERS Safety Report 15189346 (Version 5)
Quarter: 2025Q3

REPORT INFORMATION
  Report Type: Report from Study
  Country: US (occurrence: US)
  Receive Date: 20180724
  Receipt Date: 20250704
  Transmission Date: 20251021
  Serious: No
  Sender: TAKEDA
  Company Number: US-TAKEDA-2018TUS022851

PATIENT
  Age: 55 Year
  Sex: Female
  Weight: 81 kg

DRUGS (6)
  1. VEDOLIZUMAB [Suspect]
     Active Substance: VEDOLIZUMAB
     Indication: Colitis ulcerative
  2. VEDOLIZUMAB [Suspect]
     Active Substance: VEDOLIZUMAB
     Indication: Colitis ulcerative
     Dosage: 108 MILLIGRAM, Q2WEEKS
     Dates: start: 20250425
  3. VEDOLIZUMAB [Suspect]
     Active Substance: VEDOLIZUMAB
  4. VITAMIN D NOS [Concomitant]
     Active Substance: CHOLECALCIFEROL\ERGOCALCIFEROL
     Indication: Vitamin D decreased
     Dosage: UNK, QD
  5. SYNTHROID [Concomitant]
     Active Substance: LEVOTHYROXINE SODIUM
     Indication: Hypothyroidism
     Dosage: UNK, QD
  6. CELEXA [Concomitant]
     Active Substance: CITALOPRAM HYDROBROMIDE
     Indication: Depression
     Dosage: 20 MILLIGRAM, QD
     Dates: start: 201804

REACTIONS (11)
  - Mycobacterium tuberculosis complex test positive [Unknown]
  - Alopecia [Not Recovered/Not Resolved]
  - Mood swings [Not Recovered/Not Resolved]
  - Gastrointestinal disorder [Unknown]
  - C-reactive protein abnormal [Unknown]
  - SARS-CoV-2 test positive [Unknown]
  - Nasopharyngitis [Unknown]
  - Injection site pain [Unknown]
  - Injection site discharge [Unknown]
  - Incorrect dose administered [Unknown]
  - Injection site erythema [Unknown]

NARRATIVE: CASE EVENT DATE: 20181005
